FAERS Safety Report 7305524-5 (Version None)
Quarter: 2011Q1

REPORT INFORMATION
  Report Type: 
  Country: None (occurrence: None)
  Receive Date: 20110222
  Receipt Date: 20110211
  Transmission Date: 20110831
  Serious: Yes (Hospitalization)
  Sender: FDA-Public Use
  Company Number: NL-MEDIMMUNE-MEDI-0012448

PATIENT
  Sex: Male
  Weight: 4.41 kg

DRUGS (8)
  1. PANCREATIN [Concomitant]
  2. TOCOPHEROL CONCENTRATE CAP [Concomitant]
  3. MACROGOL [Concomitant]
  4. VITAMIN-B-COMPLEX STANDARD [Concomitant]
  5. SYNAGIS [Suspect]
     Route: 030
     Dates: start: 20101214, end: 20110111
  6. PHYTONADIONE [Concomitant]
  7. AMOXICILLIN [Concomitant]
  8. RETINOL [Concomitant]

REACTIONS (3)
  - SENSE OF OPPRESSION [None]
  - DECREASED APPETITE [None]
  - INFLUENZA [None]
